FAERS Safety Report 5721502-1 (Version None)
Quarter: 2008Q2

REPORT INFORMATION
  Report Type: 
  Country: None (occurrence: None)
  Receive Date: 20080429
  Receipt Date: 20080423
  Transmission Date: 20081010
  Serious: Yes (Death, Hospitalization, Other)
  Sender: FDA-Public Use
  Company Number: 10208825

PATIENT
  Age: 84 Year
  Sex: Male

DRUGS (14)
  1. MAXIPIME [Suspect]
     Indication: PNEUMONIA BACTERIAL
     Dosage: OCTOBER 30-NOVEMBER 1 NO MAXIPIME
     Route: 042
     Dates: start: 19991027, end: 19991030
  2. MAXIPIME [Suspect]
     Indication: PNEUMONIA
     Dosage: OCTOBER 30-NOVEMBER 1 NO MAXIPIME
     Route: 042
     Dates: start: 19991027, end: 19991030
  3. MAXIPIME [Suspect]
     Dosage: 03 NOVEMBER 99:  NO ANTIBIOTICS ON DIALYSIS DAYS
     Route: 042
     Dates: start: 19991102, end: 19991104
  4. MAXIPIME [Suspect]
     Dosage: 03 NOVEMBER 99:  NO ANTIBIOTICS ON DIALYSIS DAYS
     Route: 042
     Dates: start: 19991102, end: 19991104
  5. MAXIPIME [Suspect]
     Route: 042
     Dates: start: 19991105, end: 19991105
  6. MAXIPIME [Suspect]
     Route: 042
     Dates: start: 19991105, end: 19991105
  7. MAXIPIME [Suspect]
     Dosage: AFTER DIALYSIS
     Route: 042
     Dates: start: 19991106, end: 19991110
  8. MAXIPIME [Suspect]
     Dosage: AFTER DIALYSIS
     Route: 042
     Dates: start: 19991106, end: 19991110
  9. CIPROFLOXACIN HCL [Concomitant]
     Dosage: NO ANTIBIOTICS ON DIALYSIS DAYS
     Route: 042
     Dates: start: 19991027
  10. THEOPHYLLINE [Concomitant]
  11. ALLOPURINOL [Concomitant]
  12. MEDROL [Concomitant]
  13. INHALERS [Concomitant]
  14. FRAXIPARINE [Concomitant]

REACTIONS (7)
  - AGITATION [None]
  - APHASIA [None]
  - CARDIOPULMONARY FAILURE [None]
  - CHEYNE-STOKES RESPIRATION [None]
  - COMA [None]
  - DEPRESSED LEVEL OF CONSCIOUSNESS [None]
  - MYOCLONUS [None]
